FAERS Safety Report 4296899-2 (Version None)
Quarter: 2004Q1

REPORT INFORMATION
  Report Type: 
  Country: None (occurrence: None)
  Receive Date: 20040217
  Receipt Date: 20040206
  Transmission Date: 20041129
  Serious: Yes (Hospitalization)
  Sender: FDA-Public Use
  Company Number: DE-BRISTOL-MYERS SQUIBB COMPANY-12499380

PATIENT
  Age: 69 Year
  Sex: Female
  Weight: 47 kg

DRUGS (6)
  1. TAXOL [Suspect]
     Indication: OVARIAN CANCER
     Route: 042
     Dates: start: 20031017, end: 20031017
  2. TAXOL [Suspect]
     Route: 042
     Dates: start: 20031107, end: 20031107
  3. RIBOCARBO [Suspect]
     Indication: OVARIAN CANCER
     Route: 042
     Dates: start: 20031017, end: 20031017
  4. RIBOCARBO [Suspect]
     Route: 042
     Dates: start: 20031107, end: 20031107
  5. GEMZAR [Suspect]
     Route: 042
     Dates: start: 20031017, end: 20031017
  6. GEMZAR [Suspect]
     Route: 042
     Dates: start: 20031107, end: 20031107

REACTIONS (3)
  - EPISTAXIS [None]
  - HYPOVOLAEMIA [None]
  - PANCYTOPENIA [None]
